FAERS Safety Report 7989180-9 (Version None)
Quarter: 2011Q4

REPORT INFORMATION
  Report Type: 
  Country: None (occurrence: None)
  Receive Date: 20111219
  Receipt Date: 20111206
  Transmission Date: 20120403
  Serious: Yes (Hospitalization)
  Sender: FDA-Public Use
  Company Number: CA-JNJFOC-20111205226

PATIENT
  Sex: Male
  Weight: 60.3 kg

DRUGS (3)
  1. ENZYMES [Concomitant]
     Route: 065
  2. REMICADE [Suspect]
     Indication: COLITIS
     Dosage: THE PATIENT WAS OFF INFLIXIMAB FROM 13-JUL-2011 TO 06-DEC-2011
     Route: 042
     Dates: start: 20110602
  3. REMICADE [Suspect]
     Indication: ANKYLOSING SPONDYLITIS
     Dosage: THE PATIENT WAS OFF INFLIXIMAB FROM 13-JUL-2011 TO 06-DEC-2011
     Route: 042
     Dates: start: 20110602

REACTIONS (1)
  - APPENDICITIS PERFORATED [None]
